FAERS Safety Report 12833483 (Version 1)
Quarter: 2016Q4

REPORT INFORMATION
  Report Type: Spontaneous
  Country: US (occurrence: US)
  Receive Date: 20161010
  Receipt Date: 20161010
  Transmission Date: 20170207
  Serious: No
  Sender: FDA-Public Use
  Company Number: US-UPSHER-SMITH LABORATORIES, INC.-15002958

PATIENT
  Sex: Female

DRUGS (6)
  1. CALCIUM [Concomitant]
     Active Substance: CALCIUM
     Dosage: UNK
  2. S-ADENOSYLMETHIONINE SULFATE P-TOLUENESULFONATE [Concomitant]
     Active Substance: ADEMETIONINE SULFATE TOSILATE
     Indication: AFFECTIVE DISORDER
     Dosage: UNK
  3. ESTRADIOL. [Concomitant]
     Active Substance: ESTRADIOL
     Indication: PRODUCT USED FOR UNKNOWN INDICATION
     Dosage: UNK
     Route: 061
     Dates: start: 2013, end: 2013
  4. FORTICAL [Suspect]
     Active Substance: CALCITONIN SALMON
     Indication: OSTEOPOROSIS
     Dosage: 200 IU, QD
     Route: 045
     Dates: start: 2005
  5. ESTRADIOL TRANSDERMAL SYSTEM [Concomitant]
     Active Substance: ESTRADIOL
     Indication: PRODUCT USED FOR UNKNOWN INDICATION
     Dosage: UNK
     Route: 062
     Dates: start: 201305
  6. VITAMIN D [Concomitant]
     Active Substance: CHOLECALCIFEROL
     Dosage: UNK

REACTIONS (7)
  - Bronchitis [Recovered/Resolved]
  - Drug ineffective [Not Recovered/Not Resolved]
  - Dermatitis contact [Not Recovered/Not Resolved]
  - Actinic keratosis [Recovered/Resolved]
  - Chest pain [Recovered/Resolved]
  - Bone density decreased [Recovered/Resolved]
  - Dysphonia [Not Recovered/Not Resolved]

NARRATIVE: CASE EVENT DATE: 2006
